FAERS Safety Report 11501676 (Version 1)
Quarter: 2015Q3

REPORT INFORMATION
  Report Type: Spontaneous
  Country: GB (occurrence: GB)
  Receive Date: 20150914
  Receipt Date: 20150914
  Transmission Date: 20151125
  Serious: Yes (Other)
  Sender: FDA-Public Use
  Company Number: GB-GLAXOSMITHKLINE-GB2015061605

PATIENT
  Age: 3 Week
  Sex: Male
  Weight: 3.5 kg

DRUGS (2)
  1. AMOXICILLIN SODIUM [Suspect]
     Active Substance: AMOXICILLIN SODIUM
     Indication: RESPIRATORY TRACT INFECTION
     Route: 041
     Dates: start: 20140611, end: 20140613
  2. ACICLOVIR [Suspect]
     Active Substance: ACYCLOVIR
     Indication: RESPIRATORY TRACT INFECTION
     Route: 042
     Dates: start: 20140611, end: 20140613

REACTIONS (2)
  - Injection site reaction [Not Recovered/Not Resolved]
  - Off label use [Not Recovered/Not Resolved]

NARRATIVE: CASE EVENT DATE: 20140611
